FAERS Safety Report 9936865 (Version 1)
Quarter: 2014Q1

REPORT INFORMATION
  Report Type: Spontaneous
  Country: US (occurrence: None)
  Receive Date: 20140115
  Receipt Date: 20140115
  Transmission Date: 20141002
  Serious: Yes (Other)
  Sender: FDA-Public Use
  Company Number: 2013US002700

PATIENT
  Age: 73 Year
  Sex: Male
  Weight: 76 kg

DRUGS (5)
  1. ICLUSIG (PONATINIB) TABLET, 45MG [Suspect]
     Indication: CHRONIC MYELOID LEUKAEMIA
     Route: 048
     Dates: start: 20130801
  2. COMPAZINE (PROCHLORPERAZINE EDISYLATE) [Concomitant]
  3. ALLOPURINOL (ALLOPURINOL) [Concomitant]
  4. METOPROLOL (METOPROLOL) [Concomitant]
  5. HYDROCODONE (HYDROCODONE) [Concomitant]

REACTIONS (1)
  - Platelet count decreased [None]
